FAERS Safety Report 5850548-8 (Version None)
Quarter: 2008Q3

REPORT INFORMATION
  Report Type: 
  Country: None (occurrence: None)
  Receive Date: 20080818
  Receipt Date: 20080804
  Transmission Date: 20090109
  Serious: Yes (Other)
  Sender: FDA-Public Use
  Company Number: 2008S1007793

PATIENT
  Age: 82 Year
  Sex: Female

DRUGS (1)
  1. PHOSPHOSODA FLAVOR NOT SPECIFIED [Suspect]
     Indication: COLONOSCOPY
     Dosage: PO
     Route: 048
     Dates: start: 20070515, end: 20070515

REACTIONS (6)
  - FATIGUE [None]
  - INFLUENZA LIKE ILLNESS [None]
  - LETHARGY [None]
  - NEPHROPATHY [None]
  - OLIGURIA [None]
  - RENAL FAILURE ACUTE [None]
